FAERS Safety Report 23272566 (Version 1)
Quarter: 2023Q4

REPORT INFORMATION
  Report Type: Spontaneous
  Country: JP (occurrence: None)
  Receive Date: 20231207
  Receipt Date: 20231207
  Transmission Date: 20240109
  Serious: Yes (Other)
  Sender: FDA-Public Use
  Company Number: 2023A273277

PATIENT
  Age: 39 Year
  Sex: Male

DRUGS (21)
  1. IRESSA [Suspect]
     Active Substance: GEFITINIB
     Indication: Non-small cell lung cancer
     Route: 048
     Dates: start: 201201
  2. IRESSA [Suspect]
     Active Substance: GEFITINIB
     Indication: Non-small cell lung cancer
     Route: 048
     Dates: start: 202011
  3. IRESSA [Suspect]
     Active Substance: GEFITINIB
     Indication: Non-small cell lung cancer
     Route: 048
     Dates: start: 202208, end: 2023
  4. IRESSA [Suspect]
     Active Substance: GEFITINIB
     Indication: Non-small cell lung cancer
     Route: 048
     Dates: start: 2023
  5. TAGRISSO [Suspect]
     Active Substance: OSIMERTINIB
     Indication: Non-small cell lung cancer
     Route: 048
     Dates: start: 201704, end: 201910
  6. TAGRISSO [Suspect]
     Active Substance: OSIMERTINIB
     Indication: Non-small cell lung cancer
     Route: 048
     Dates: start: 202004, end: 202010
  7. TAGRISSO [Suspect]
     Active Substance: OSIMERTINIB
     Indication: Non-small cell lung cancer
     Route: 048
     Dates: start: 202104
  8. DOCETAXEL [Concomitant]
     Active Substance: DOCETAXEL\DOCETAXEL ANHYDROUS
     Indication: Non-small cell lung cancer
     Dosage: DOSE UNKNOWN
     Route: 065
     Dates: start: 201305
  9. DOCETAXEL [Concomitant]
     Active Substance: DOCETAXEL\DOCETAXEL ANHYDROUS
     Indication: Non-small cell lung cancer
     Dosage: DOSE UNKNOWN
     Route: 065
     Dates: start: 201910
  10. TS-1 [Concomitant]
     Active Substance: GIMERACIL\OTERACIL POTASSIUM\TEGAFUR
     Indication: Non-small cell lung cancer
     Dosage: DOSE UNKNOWN, ADMINISTERED FOR TWO WEEKS ON/ONE WEEK OFF
     Route: 065
     Dates: start: 201409
  11. VINORELBINE TARTRATE [Concomitant]
     Active Substance: VINORELBINE TARTRATE
     Indication: Non-small cell lung cancer
     Dosage: DOSE UNKNOWN
     Route: 065
     Dates: start: 201412
  12. AFATINIB DIMALEATE [Concomitant]
     Active Substance: AFATINIB DIMALEATE
     Indication: Non-small cell lung cancer
     Dosage: DOSE UNKNOWN
     Route: 065
     Dates: start: 201509
  13. CARBOPLATIN [Concomitant]
     Active Substance: CARBOPLATIN
     Indication: Non-small cell lung cancer
     Dosage: DOSE UNKNOWN
     Route: 065
     Dates: start: 201510
  14. CARBOPLATIN [Concomitant]
     Active Substance: CARBOPLATIN
     Indication: Non-small cell lung cancer
     Dosage: DOSE UNKNOWN
     Route: 065
     Dates: start: 201702
  15. CARBOPLATIN [Concomitant]
     Active Substance: CARBOPLATIN
     Indication: Non-small cell lung cancer
     Dosage: DOSE UNKNOWN
     Route: 065
     Dates: start: 202011
  16. PACLITAXEL [Concomitant]
     Active Substance: PACLITAXEL
     Indication: Non-small cell lung cancer
     Dosage: DOSE UNKNOWN
     Route: 065
     Dates: start: 201510
  17. PACLITAXEL [Concomitant]
     Active Substance: PACLITAXEL
     Indication: Non-small cell lung cancer
     Dosage: DOSE UNKNOWN
     Route: 065
     Dates: start: 201702
  18. PEMETREXED [Concomitant]
     Active Substance: PEMETREXED
     Indication: Non-small cell lung cancer
     Dosage: DOSE UNKNOWN
     Route: 065
     Dates: start: 201609
  19. PEMETREXED [Concomitant]
     Active Substance: PEMETREXED
     Indication: Non-small cell lung cancer
     Dosage: DOSE UNKNOWN
     Route: 065
     Dates: start: 202011
  20. RAMUCIRUMAB [Concomitant]
     Active Substance: RAMUCIRUMAB
     Indication: Non-small cell lung cancer
     Dosage: DOSE UNKNOWN
     Route: 065
     Dates: start: 201910
  21. ATEZOLIZUMAB [Concomitant]
     Active Substance: ATEZOLIZUMAB
     Indication: Non-small cell lung cancer
     Dosage: DOSE UNKNOWN
     Route: 065
     Dates: start: 202108

REACTIONS (3)
  - Toxicity to various agents [Unknown]
  - Myelosuppression [Unknown]
  - Brain radiation necrosis [Unknown]

NARRATIVE: CASE EVENT DATE: 20160601
